FAERS Safety Report 14035418 (Version 1)
Quarter: 2017Q4

REPORT INFORMATION
  Report Type: Other
  Country: US (occurrence: US)
  Receive Date: 20171003
  Receipt Date: 20171003
  Transmission Date: 20180321
  Serious: Yes (Death, Hospitalization)
  Sender: FDA-Public Use
  Company Number: US-INTERCEPT-PMOCA2017001033

PATIENT

DRUGS (2)
  1. OCALIVA [Suspect]
     Active Substance: OBETICHOLIC ACID
     Indication: BILIARY CIRRHOSIS PRIMARY
     Dosage: 5 MG, QD
     Route: 048
  2. URSO [Concomitant]
     Active Substance: URSODIOL

REACTIONS (4)
  - Cholangitis [Fatal]
  - Cholestasis [Fatal]
  - Cholelithiasis [Unknown]
  - Drug prescribing error [Unknown]
